FAERS Safety Report 19133760 (Version 1)
Quarter: 2021Q2

REPORT INFORMATION
  Report Type: Spontaneous
  Country: US (occurrence: US)
  Receive Date: 20210414
  Receipt Date: 20210414
  Transmission Date: 20210717
  Serious: No
  Sender: FDA-Public Use
  Company Number: None

PATIENT
  Sex: Female

DRUGS (1)
  1. COSENTYX [Suspect]
     Active Substance: SECUKINUMAB
     Indication: ARTHRITIS
     Dosage: ?          OTHER FREQUENCY:EVERY28DAYS ;?
     Route: 058
     Dates: start: 20201211

REACTIONS (3)
  - Musculoskeletal stiffness [None]
  - Loss of personal independence in daily activities [None]
  - Therapeutic product effect decreased [None]
